FAERS Safety Report 5083711-7 (Version None)
Quarter: 2006Q3

REPORT INFORMATION
  Report Type: 
  Country: None (occurrence: None)
  Receive Date: 20060818
  Receipt Date: 20060706
  Transmission Date: 20061208
  Serious: Yes (Hospitalization)
  Sender: FDA-Public Use
  Company Number: US-ROCHE-454532

PATIENT
  Age: 40 Year
  Sex: Female

DRUGS (4)
  1. PEGASYS [Suspect]
     Route: 058
     Dates: start: 20060315, end: 20060629
  2. RIBAVIRIN [Suspect]
     Route: 048
     Dates: start: 20060315, end: 20060629
  3. XANAX [Concomitant]
     Indication: IRRITABILITY
     Route: 048
  4. DOXYCYCLINE [Concomitant]

REACTIONS (3)
  - CONVULSION [None]
  - IRRITABLE BOWEL SYNDROME [None]
  - LOSS OF CONSCIOUSNESS [None]
